FAERS Safety Report 9323705 (Version 2)
Quarter: 2013Q2

REPORT INFORMATION
  Report Type: Report from Study
  Country: CA (occurrence: CA)
  Receive Date: 20130603
  Receipt Date: 20130604
  Transmission Date: 20140414
  Serious: Yes (Death)
  Sender: FDA-Public Use
  Company Number: PHHY2013CA055328

PATIENT
  Sex: Male

DRUGS (3)
  1. CLOZARIL [Suspect]
     Indication: SCHIZOPHRENIA
     Dosage: UNK
     Route: 048
     Dates: start: 19941115
  2. CLOZARIL [Suspect]
     Dosage: 75 MG, QHS
     Route: 048
  3. CLOZARIL [Suspect]
     Dosage: 400 MG, QHS
     Route: 048

REACTIONS (3)
  - Respiratory failure [Fatal]
  - Hypotension [Fatal]
  - Schizophrenia [Fatal]
